FAERS Safety Report 11274047 (Version 1)
Quarter: 2015Q3

REPORT INFORMATION
  Report Type: Spontaneous
  Country: US (occurrence: US)
  Receive Date: 20150715
  Receipt Date: 20150715
  Transmission Date: 20151125
  Serious: No
  Sender: FDA-Public Use
  Company Number: US-ENDO PHARMACEUTICALS INC.-DOXA20150001

PATIENT
  Sex: Female

DRUGS (2)
  1. DOXAZOSIN MESYLATE TABLETS [Suspect]
     Active Substance: DOXAZOSIN MESYLATE
     Route: 048
     Dates: start: 201412, end: 20150120
  2. DOXAZOSIN MESYLATE TABLETS [Suspect]
     Active Substance: DOXAZOSIN MESYLATE
     Indication: HYPERTENSION
     Route: 048
     Dates: start: 20150121

REACTIONS (1)
  - Drug ineffective [Not Recovered/Not Resolved]
